FAERS Safety Report 8889063 (Version 2)
Quarter: 2012Q4

REPORT INFORMATION
  Report Type: Report from Study
  Country: DE (occurrence: DE)
  Receive Date: 20121106
  Receipt Date: 20121225
  Transmission Date: 20130627
  Serious: Yes (Hospitalization)
  Sender: FDA-Public Use
  Company Number: DE-BRISTOL-MYERS SQUIBB COMPANY-17090283

PATIENT
  Age: 49 Year
  Sex: Male
  Weight: 75 kg

DRUGS (6)
  1. ERBITUX SOLN FOR INF [Suspect]
     Indication: COLORECTAL CANCER METASTATIC
     Dosage: 13Aug12-03Sep12:400mg/m2
20Aug12-24Sep12:250mg/m2
recent inf:03Sep12
Duration:21Days
     Route: 042
     Dates: start: 20120813, end: 20121001
  2. CAPECITABINE [Concomitant]
     Indication: COLORECTAL CANCER METASTATIC
  3. OXALIPLATIN [Concomitant]
     Indication: COLORECTAL CANCER METASTATIC
  4. CAMPTO [Concomitant]
     Indication: COLORECTAL CANCER METASTATIC
     Route: 042
     Dates: start: 20120803, end: 20121001
  5. 5-FLUOROURACIL [Concomitant]
     Indication: COLORECTAL CANCER METASTATIC
     Route: 042
     Dates: start: 20120803, end: 20121001
  6. FOLINIC ACID [Concomitant]
     Indication: COLORECTAL CANCER METASTATIC
     Route: 042
     Dates: start: 20120803, end: 20121001

REACTIONS (1)
  - Abscess limb [Recovered/Resolved]
